FAERS Safety Report 17118309 (Version 6)
Quarter: 2024Q4

REPORT INFORMATION
  Report Type: Spontaneous
  Country: US (occurrence: US)
  Receive Date: 20191205
  Receipt Date: 20241009
  Transmission Date: 20250114
  Serious: Yes (Other)
  Sender: BIOMARIN
  Company Number: US-BIOMARINAP-US-2019-127219

PATIENT

DRUGS (2)
  1. LARONIDASE [Suspect]
     Active Substance: LARONIDASE
     Indication: Mucopolysaccharidosis I
     Dosage: 14.5 MG, QW
     Route: 042
     Dates: start: 20180321
  2. LARONIDASE [Suspect]
     Active Substance: LARONIDASE
     Dosage: 20.3 MG, QW
     Route: 042

REACTIONS (15)
  - Arnold-Chiari malformation [Recovered/Resolved]
  - Corneal opacity [Unknown]
  - Muscle tightness [Recovered/Resolved]
  - Dental caries [Not Recovered/Not Resolved]
  - Tooth loss [Not Recovered/Not Resolved]
  - Anxiety [Not Recovered/Not Resolved]
  - Frustration tolerance decreased [Not Recovered/Not Resolved]
  - Reading disorder [Not Recovered/Not Resolved]
  - Memory impairment [Unknown]
  - Cyst removal [Recovered/Resolved]
  - Adenotonsillectomy [Recovered/Resolved]
  - Ear tube insertion [Recovered/Resolved]
  - Sleep apnoea syndrome [Unknown]
  - Muscle contracture [Unknown]
  - Heart valve incompetence [Unknown]
